FAERS Safety Report 11037224 (Version 1)
Quarter: 2015Q2

REPORT INFORMATION
  Report Type: Spontaneous
  Country: GB (occurrence: None)
  Receive Date: 20150414
  Receipt Date: 20150414
  Transmission Date: 20150821
  Serious: Yes (Other)
  Sender: FDA-Public Use
  Company Number: 20151054

PATIENT
  Sex: Female

DRUGS (9)
  1. LANSOPRAZOLE. [Concomitant]
     Active Substance: LANSOPRAZOLE
  2. MST/MORPHINE SULFATE [Concomitant]
  3. METOJECT PEN (METHOTREXATE DISODIUM) [Suspect]
     Active Substance: METHOTREXATE SODIUM
  4. FOLIC ACID. [Concomitant]
     Active Substance: FOLIC ACID
  5. AMITRIPTYLINE [Concomitant]
     Active Substance: AMITRIPTYLINE
  6. DICLOFENAC [Concomitant]
     Active Substance: DICLOFENAC
  7. LIDOCAINE. [Concomitant]
     Active Substance: LIDOCAINE
  8. SALAZOPYRIN (SULFASALAZINE) [Concomitant]
  9. ORAMORPH (MORPHINE SULFATE) [Concomitant]

REACTIONS (3)
  - General physical condition abnormal [None]
  - Joint swelling [None]
  - Abasia [None]
